FAERS Safety Report 25385916 (Version 1)
Quarter: 2025Q2

REPORT INFORMATION
  Report Type: Spontaneous
  Country: US (occurrence: US)
  Receive Date: 20250602
  Receipt Date: 20250602
  Transmission Date: 20250717
  Serious: Yes (Other)
  Sender: MERCK SHARP & DOHME LLC
  Company Number: US-009507513-2291148

PATIENT
  Age: 39 Year
  Sex: Female

DRUGS (2)
  1. BELZUTIFAN [Suspect]
     Active Substance: BELZUTIFAN
     Indication: Clear cell renal cell carcinoma
     Route: 048
  2. BELZUTIFAN [Suspect]
     Active Substance: BELZUTIFAN
     Indication: Clear cell renal cell carcinoma
     Dosage: APPROXIMATELY 9 MONTHS AFTER STARTING BELZUTIFAN, THE DOSE WAS REDUCED
     Route: 048

REACTIONS (1)
  - Anaemia [Unknown]
